FAERS Safety Report 4305776-X (Version None)
Quarter: 2004Q1

REPORT INFORMATION
  Report Type: 
  Country: None (occurrence: None)
  Receive Date: 20040225
  Receipt Date: 20040212
  Transmission Date: 20041129
  Serious: Yes (Hospitalization, Other)
  Sender: FDA-Public Use
  Company Number: HQWYE938312FEB04

PATIENT
  Age: 4 Year
  Sex: Male

DRUGS (1)
  1. CHILDREN'S ADVIL [Suspect]
     Indication: PYREXIA
     Dosage: ORAL
     Route: 048
     Dates: start: 20040120, end: 20040226

REACTIONS (10)
  - CELLULITIS [None]
  - HAEMOGLOBIN DECREASED [None]
  - INFLAMMATION [None]
  - LYMPHADENOPATHY [None]
  - LYMPHANGITIS [None]
  - PLATELET COUNT INCREASED [None]
  - RASH MACULAR [None]
  - SKIN NODULE [None]
  - SKIN ULCER [None]
  - WHITE BLOOD CELL COUNT INCREASED [None]
